FAERS Safety Report 15043586 (Version 2)
Quarter: 2018Q3

REPORT INFORMATION
  Report Type: Spontaneous
  Country: KR (occurrence: KR)
  Receive Date: 20180621
  Receipt Date: 20180712
  Transmission Date: 20181010
  Serious: Yes (Other)
  Sender: FDA-Public Use
  Company Number: KR-PFIZER INC-2018246775

PATIENT
  Age: 60 Year
  Sex: Female

DRUGS (5)
  1. VINCRISTINE SULFATE. [Suspect]
     Active Substance: VINCRISTINE SULFATE
     Indication: PRIMARY EFFUSION LYMPHOMA
     Dosage: UNK, CYCLIC
  2. RITUXIMAB. [Suspect]
     Active Substance: RITUXIMAB
     Indication: PRIMARY EFFUSION LYMPHOMA
     Dosage: UNK UNK, CYCLIC
  3. PREDNISONE. [Suspect]
     Active Substance: PREDNISONE
     Indication: PRIMARY EFFUSION LYMPHOMA
     Dosage: UNK UNK, CYCLIC
  4. DOXORUBICIN [Suspect]
     Active Substance: DOXORUBICIN
     Indication: PRIMARY EFFUSION LYMPHOMA
     Dosage: UNK UNK, CYCLIC (CUMULATIVE DOSE 237 MG/M*2)
  5. CYCLOPHOSPHAMIDE. [Suspect]
     Active Substance: CYCLOPHOSPHAMIDE
     Indication: PRIMARY EFFUSION LYMPHOMA
     Dosage: UNK UNK, CYCLIC

REACTIONS (2)
  - Febrile neutropenia [Recovered/Resolved]
  - Myocarditis [Recovering/Resolving]
